FAERS Safety Report 17801360 (Version 1)
Quarter: 2020Q2

REPORT INFORMATION
  Report Type: Spontaneous
  Country: TH (occurrence: TH)
  Receive Date: 20200519
  Receipt Date: 20200519
  Transmission Date: 20200714
  Serious: Yes (Other)
  Sender: FDA-Public Use
  Company Number: TH-NOVAST LABORATORIES LTD.-2020NOV000261

PATIENT
  Age: 9 Year
  Sex: Male

DRUGS (1)
  1. ACETAZOLAMIDE. [Suspect]
     Active Substance: ACETAZOLAMIDE
     Indication: IDIOPATHIC INTRACRANIAL HYPERTENSION
     Dosage: 250 MILLIGRAM, QD
     Route: 048

REACTIONS (1)
  - Diabetic ketoacidosis [Recovered/Resolved]
